FAERS Safety Report 19935522 (Version 3)
Quarter: 2022Q1

REPORT INFORMATION
  Report Type: Spontaneous
  Country: BR (occurrence: BR)
  Receive Date: 20211009
  Receipt Date: 20220127
  Transmission Date: 20220423
  Serious: Yes (Hospitalization, Other)
  Sender: FDA-Public Use
  Company Number: NVSC2021BR226124

PATIENT
  Age: 29 Year
  Sex: Female

DRUGS (1)
  1. COSENTYX [Suspect]
     Active Substance: SECUKINUMAB
     Indication: Product used for unknown indication
     Dosage: UNK
     Route: 065
     Dates: start: 20210920

REACTIONS (23)
  - Tonsillitis [Unknown]
  - Decreased immune responsiveness [Unknown]
  - Tonsillar inflammation [Unknown]
  - Nausea [Unknown]
  - Inflammation [Unknown]
  - Feeling hot [Recovered/Resolved]
  - Depressed mood [Unknown]
  - Headache [Unknown]
  - Dysgeusia [Unknown]
  - Asthenia [Unknown]
  - Malaise [Unknown]
  - Haematoma [Unknown]
  - Tonsillar hypertrophy [Unknown]
  - Vomiting [Unknown]
  - Decreased appetite [Unknown]
  - Feeling hot [Recovered/Resolved]
  - Emotional disorder [Unknown]
  - Insomnia [Unknown]
  - Psoriasis [Unknown]
  - Skin lesion [Unknown]
  - Pruritus [Unknown]
  - Retching [Unknown]
  - Drug ineffective [Unknown]

NARRATIVE: CASE EVENT DATE: 20210920
